FAERS Safety Report 7322965-0 (Version None)
Quarter: 2011Q1

REPORT INFORMATION
  Report Type: 
  Country: None (occurrence: None)
  Receive Date: 20110301
  Receipt Date: 20110218
  Transmission Date: 20110831
  Serious: Yes (Other)
  Sender: FDA-Public Use
  Company Number: PHHY2010BR48186

PATIENT
  Age: 36 Year
  Sex: Female

DRUGS (4)
  1. TEGRETOL-XR [Suspect]
     Indication: CONVULSION
     Dosage: 200 MG, BID
     Route: 048
  2. SERTRALINE [Concomitant]
     Indication: DEPRESSION
     Dosage: 50 MG, BID
     Route: 048
     Dates: start: 20020101
  3. TEGRETOL [Concomitant]
     Dosage: 200 MG, BID
     Route: 048
  4. VALIUM [Concomitant]
     Indication: CONVULSION
     Dosage: 10 MG, 1 TABLET DAILY
     Route: 048
     Dates: start: 20020101

REACTIONS (3)
  - DRUG DOSE OMISSION [None]
  - CONCOMITANT DISEASE PROGRESSION [None]
  - CONVULSION [None]
